FAERS Safety Report 19636575 (Version 1)
Quarter: 2021Q3

REPORT INFORMATION
  Report Type: Spontaneous
  Country: US (occurrence: US)
  Receive Date: 20210730
  Receipt Date: 20210730
  Transmission Date: 20211014
  Serious: No
  Sender: FDA-Public Use
  Company Number: None

PATIENT
  Age: 89 Year
  Sex: Male
  Weight: 64.7 kg

DRUGS (1)
  1. RITUXAN [Suspect]
     Active Substance: RITUXIMAB
     Indication: WALDENSTROM^S MACROGLOBULINAEMIA
     Dosage: ?          OTHER FREQUENCY:EVERY 28 DAYS;?
     Route: 041
     Dates: start: 20201229, end: 20210406

REACTIONS (5)
  - Oral discomfort [None]
  - Infusion related reaction [None]
  - Dyspnoea [None]
  - Chest discomfort [None]
  - Hypoaesthesia oral [None]

NARRATIVE: CASE EVENT DATE: 20210406
